FAERS Safety Report 8064016-9 (Version None)
Quarter: 2012Q1

REPORT INFORMATION
  Report Type: 
  Country: None (occurrence: None)
  Receive Date: 20120123
  Receipt Date: 20120118
  Transmission Date: 20120608
  Serious: Yes (Hospitalization, Other)
  Sender: FDA-Public Use
  Company Number: US-PFIZER INC-2012014713

PATIENT
  Sex: Female
  Weight: 78.005 kg

DRUGS (4)
  1. XANAX [Concomitant]
     Indication: ANXIETY
     Dosage: 2 MG, 2X/DAY
  2. AMBIEN [Concomitant]
     Indication: INSOMNIA
     Dosage: 10 MG, UNK
  3. LYRICA [Suspect]
     Indication: NERVE COMPRESSION
     Dosage: 100 MG, 3X/DAY
     Route: 048
     Dates: start: 20101201
  4. LYRICA [Suspect]
     Dosage: UNK
     Route: 048

REACTIONS (7)
  - PULMONARY OEDEMA [None]
  - DECREASED APPETITE [None]
  - PNEUMONIA [None]
  - WHITE BLOOD CELL COUNT INCREASED [None]
  - THYROID DISORDER [None]
  - MALAISE [None]
  - NAUSEA [None]
